FAERS Safety Report 16290079 (Version 1)
Quarter: 2019Q2

REPORT INFORMATION
  Report Type: Spontaneous
  Country: US (occurrence: US)
  Receive Date: 20190509
  Receipt Date: 20190509
  Transmission Date: 20190711
  Serious: No
  Sender: FDA-Public Use
  Company Number: US-TEVA-2019-US-1046765

PATIENT
  Age: 38 Year
  Sex: Female

DRUGS (4)
  1. ASPIRIN. [Suspect]
     Active Substance: ASPIRIN
     Indication: ELECTROCARDIOGRAM ST SEGMENT ELEVATION
  2. METOPROLOL. [Suspect]
     Active Substance: METOPROLOL
     Indication: ELECTROCARDIOGRAM ST SEGMENT ELEVATION
     Route: 065
  3. METOPROLOL. [Suspect]
     Active Substance: METOPROLOL
     Indication: CHEST PAIN
  4. ASPIRIN. [Suspect]
     Active Substance: ASPIRIN
     Indication: CHEST PAIN
     Route: 065

REACTIONS (1)
  - Maternal exposure during pregnancy [Unknown]
